FAERS Safety Report 13641739 (Version 1)
Quarter: 2017Q2

REPORT INFORMATION
  Report Type: Spontaneous
  Country: US (occurrence: US)
  Receive Date: 20170611
  Receipt Date: 20170611
  Transmission Date: 20170830
  Serious: No
  Sender: FDA-Public Use
  Company Number: None

PATIENT
  Age: 24 Year
  Sex: Female
  Weight: 53.12 kg

DRUGS (1)
  1. PARAGARD T 380A [Suspect]
     Active Substance: COPPER

REACTIONS (9)
  - Depression [None]
  - Palpitations [None]
  - Paranoia [None]
  - Anxiety [None]
  - Panic attack [None]
  - Tachyphrenia [None]
  - Therapy non-responder [None]
  - Hypertension [None]
  - Metal poisoning [None]

NARRATIVE: CASE EVENT DATE: 20161118
